FAERS Safety Report 25686094 (Version 2)
Quarter: 2025Q3

REPORT INFORMATION
  Report Type: Report from Study
  Country: US (occurrence: US)
  Receive Date: 20250815
  Receipt Date: 20250822
  Transmission Date: 20251021
  Serious: Yes (Other)
  Sender: MALLINCKRODT
  Company Number: US-MALLINCKRODT-MNK202504987

PATIENT
  Age: 54 Year
  Sex: Female

DRUGS (2)
  1. CORTICOTROPIN [Suspect]
     Active Substance: CORTICOTROPIN
     Indication: Iridocyclitis
     Route: 058
     Dates: start: 20250807
  2. CORTICOTROPIN [Suspect]
     Active Substance: CORTICOTROPIN
     Indication: Rheumatoid arthritis

REACTIONS (10)
  - Venous injury [Unknown]
  - Tachycardia [Unknown]
  - Nervous system disorder [Recovering/Resolving]
  - Adverse drug reaction [Unknown]
  - Nervousness [Unknown]
  - Dizziness [Unknown]
  - Palpitations [Unknown]
  - Hyperhidrosis [Unknown]
  - Fatigue [Unknown]
  - Injection site pain [Unknown]

NARRATIVE: CASE EVENT DATE: 20250801
